FAERS Safety Report 7645615-2 (Version None)
Quarter: 2011Q3

REPORT INFORMATION
  Report Type: 
  Country: None (occurrence: None)
  Receive Date: 20110729
  Receipt Date: 20110721
  Transmission Date: 20111222
  Serious: Yes (Hospitalization)
  Sender: FDA-Public Use
  Company Number: PHHY2011TW65952

PATIENT
  Age: 58 Year
  Sex: Female

DRUGS (4)
  1. LORAZEPAM [Suspect]
     Dosage: 56 DF, ONCE/SINGLE
     Route: 048
  2. SULPIRIDE [Suspect]
     Dosage: 31 DF, ONCE/SINGLE
     Route: 048
  3. BUSPIRONE HCL [Suspect]
     Dosage: 30 DF, ONCE/SINGLE
     Route: 048
  4. DULOXETINE HYDROCHLORIDE [Suspect]
     Dosage: 28 DF, ONCE/SINGLE
     Route: 048

REACTIONS (12)
  - CHILLS [None]
  - GASTROINTESTINAL SOUNDS ABNORMAL [None]
  - OESOPHAGEAL ULCER [None]
  - COMA [None]
  - HYPERREFLEXIA [None]
  - DYSPHAGIA [None]
  - NYSTAGMUS [None]
  - BEZOAR [None]
  - HYPERHIDROSIS [None]
  - MYOCLONUS [None]
  - OESOPHAGEAL OBSTRUCTION [None]
  - INTENTIONAL OVERDOSE [None]
